FAERS Safety Report 15456524 (Version 11)
Quarter: 2020Q4

REPORT INFORMATION
  Report Type: Spontaneous
  Country: US (occurrence: US)
  Receive Date: 20181002
  Receipt Date: 20201106
  Transmission Date: 20210113
  Serious: Yes (Other)
  Sender: FDA-Public Use
  Company Number: US-PFIZER INC-2018392291

PATIENT
  Age: 54 Year
  Sex: Female
  Weight: 65 kg

DRUGS (7)
  1. LYRICA [Suspect]
     Active Substance: PREGABALIN
     Indication: NEUROPATHY PERIPHERAL
     Dosage: 50 MG, UNK
  2. LYRICA [Suspect]
     Active Substance: PREGABALIN
     Dosage: 75 MG, 3X/DAY (3 TIMES DAILY)
     Route: 048
  3. PERCOCET [Concomitant]
     Active Substance: ACETAMINOPHEN\OXYCODONE HYDROCHLORIDE
     Dosage: 1 DF, 4X/DAY [(4/DAY)(EVERY 6 HRS / MAX 4 PER DAY)]
  4. MORPHINE [Concomitant]
     Active Substance: MORPHINE
     Dosage: 60 MG, UNK [DAY]
  5. AMLODIPINE/BENAZEPRIL [Concomitant]
     Active Substance: AMLODIPINE BESYLATE\BENAZEPRIL HYDROCHLORIDE
     Indication: HYPERTENSION
     Dosage: 1 DF, DAILY  [AMLODIPINE 5 MG/ BENAZEPRIL 10 MG]
     Route: 048
  6. LYRICA [Suspect]
     Active Substance: PREGABALIN
     Indication: LUMBAR RADICULOPATHY
     Dosage: 75 MG, 3X/DAY
     Route: 048
     Dates: start: 201805, end: 20180921
  7. PERCOCET [Concomitant]
     Active Substance: ACETAMINOPHEN\OXYCODONE HYDROCHLORIDE
     Indication: MYALGIA
     Dosage: 4 DF, AS NEEDED, [OXYCODONE HYDROCHLORIDE10MG/PARACETAMOL 325 MG]
     Route: 048

REACTIONS (4)
  - Neuralgia [Not Recovered/Not Resolved]
  - Throat irritation [Unknown]
  - Frustration tolerance decreased [Not Recovered/Not Resolved]
  - Dry throat [Unknown]

NARRATIVE: CASE EVENT DATE: 20180922
